FAERS Safety Report 8166159-8 (Version None)
Quarter: 2012Q1

REPORT INFORMATION
  Report Type: 
  Country: None (occurrence: None)
  Receive Date: 20120227
  Receipt Date: 20110418
  Transmission Date: 20120608
  Serious: No
  Sender: FDA-Public Use
  Company Number: US-MYLANLABS-2011S1007993

PATIENT
  Age: 26 Year
  Sex: Female

DRUGS (4)
  1. SIMVASTATIN [Concomitant]
  2. AMNESTEEM [Suspect]
     Indication: ACNE
     Route: 048
     Dates: start: 20100201, end: 20110302
  3. ORAL CONTRACEPTIVE NOS [Concomitant]
  4. VITAMIN TAB [Concomitant]

REACTIONS (1)
  - BLOOD TRIGLYCERIDES INCREASED [None]
